FAERS Safety Report 24126734 (Version 1)
Quarter: 2024Q3

REPORT INFORMATION
  Report Type: Spontaneous
  Country: UA (occurrence: UA)
  Receive Date: 20240723
  Receipt Date: 20240723
  Transmission Date: 20241016
  Serious: Yes (Other)
  Sender: DR REDDYS
  Company Number: UA-RDY-SPO/UKR/24/0010513

PATIENT
  Age: 19 Year
  Sex: Female

DRUGS (3)
  1. CIPROFLOXACIN\TINIDAZOLE [Suspect]
     Active Substance: CIPROFLOXACIN\TINIDAZOLE
     Indication: Antibiotic prophylaxis
     Dosage: 1 TABLET.
     Route: 048
     Dates: start: 20240702, end: 20240706
  2. ARTICAINE HYDROCHLORIDE\EPINEPHRINE BITARTRATE [Concomitant]
     Active Substance: ARTICAINE HYDROCHLORIDE\EPINEPHRINE BITARTRATE
     Indication: Anaesthesia procedure
     Dates: start: 20240702
  3. NIMESULIDE [Concomitant]
     Active Substance: NIMESULIDE
     Indication: Analgesic therapy
     Dosage: 1 SASHE.
     Route: 048
     Dates: start: 20240702

REACTIONS (4)
  - Swelling face [Recovered/Resolved]
  - Dyspnoea [Recovered/Resolved]
  - Swelling of eyelid [Recovered/Resolved]
  - Skin reaction [Recovered/Resolved]

NARRATIVE: CASE EVENT DATE: 20240702
